FAERS Safety Report 19110391 (Version 1)
Quarter: 2021Q2

REPORT INFORMATION
  Report Type: Spontaneous
  Country: RS (occurrence: RS)
  Receive Date: 20210408
  Receipt Date: 20210408
  Transmission Date: 20210717
  Serious: Yes (Death, Other)
  Sender: FDA-Public Use
  Company Number: RS-INCYTE CORPORATION-2021IN002906

PATIENT

DRUGS (2)
  1. JAKAVI [Suspect]
     Active Substance: RUXOLITINIB
     Indication: PRIMARY MYELOFIBROSIS
     Dosage: 20 MG (2X1)
     Route: 065
     Dates: start: 201802
  2. LITALIR [Concomitant]
     Active Substance: HYDROXYUREA
     Indication: PRODUCT USED FOR UNKNOWN INDICATION
     Dosage: 500 MG
     Route: 065

REACTIONS (10)
  - Haemorrhagic disorder [Unknown]
  - Gastrointestinal pain [Unknown]
  - Gastric ulcer [Unknown]
  - Marrow hyperplasia [Unknown]
  - Splenic rupture [Unknown]
  - Malaise [Unknown]
  - Hepatomegaly [Unknown]
  - Cardiac death [Fatal]
  - Faeces discoloured [Unknown]
  - Haemoglobin decreased [Unknown]

NARRATIVE: CASE EVENT DATE: 201804
